FAERS Safety Report 18664637 (Version 6)
Quarter: 2022Q3

REPORT INFORMATION
  Report Type: Spontaneous
  Country: GB (occurrence: GB)
  Receive Date: 20201225
  Receipt Date: 20220915
  Transmission Date: 20221027
  Serious: Yes (Other)
  Sender: FDA-Public Use
  Company Number: GB-BIOVITRUM-2020GB7897

PATIENT
  Age: 62 Year
  Sex: Female

DRUGS (52)
  1. ORFADIN [Suspect]
     Active Substance: NITISINONE
     Indication: Alkaptonuria
     Dosage: 2 MG
     Dates: start: 2012
  2. ALENDRONIC ACID [Concomitant]
     Active Substance: ALENDRONIC ACID
     Dosage: 70 MG
     Dates: start: 2012
  3. CALCIUM CARBONATE\CHOLECALCIFEROL [Concomitant]
     Active Substance: CALCIUM CARBONATE\CHOLECALCIFEROL
     Dates: start: 2012
  4. CALCIUM CARBONATE\CHOLECALCIFEROL [Concomitant]
     Active Substance: CALCIUM CARBONATE\CHOLECALCIFEROL
     Dosage: 1500MG/400IU
     Dates: start: 2013
  5. CALCIUM CARBONATE\CHOLECALCIFEROL [Concomitant]
     Active Substance: CALCIUM CARBONATE\CHOLECALCIFEROL
     Dates: start: 2014
  6. CALCIUM CARBONATE\CHOLECALCIFEROL [Concomitant]
     Active Substance: CALCIUM CARBONATE\CHOLECALCIFEROL
     Dates: start: 2015
  7. CALCIUM CARBONATE\CHOLECALCIFEROL [Concomitant]
     Active Substance: CALCIUM CARBONATE\CHOLECALCIFEROL
     Dates: start: 2016
  8. CALCIUM CARBONATE\CHOLECALCIFEROL [Concomitant]
     Active Substance: CALCIUM CARBONATE\CHOLECALCIFEROL
     Dates: start: 2017
  9. CALCIUM CARBONATE\CHOLECALCIFEROL [Concomitant]
     Active Substance: CALCIUM CARBONATE\CHOLECALCIFEROL
     Dates: start: 2018
  10. CALCIUM CARBONATE\CHOLECALCIFEROL [Concomitant]
     Active Substance: CALCIUM CARBONATE\CHOLECALCIFEROL
     Dates: start: 2019
  11. CALCIUM CARBONATE\CHOLECALCIFEROL [Concomitant]
     Active Substance: CALCIUM CARBONATE\CHOLECALCIFEROL
     Dates: start: 2020
  12. IBUPROFEN [Concomitant]
     Active Substance: IBUPROFEN
     Dosage: 400 MG
     Dates: start: 2013
  13. IBUPROFEN [Concomitant]
     Active Substance: IBUPROFEN
     Dates: start: 2014
  14. IBUPROFEN [Concomitant]
     Active Substance: IBUPROFEN
     Dates: start: 2015
  15. IBUPROFEN [Concomitant]
     Active Substance: IBUPROFEN
     Dates: start: 2016
  16. IBUPROFEN [Concomitant]
     Active Substance: IBUPROFEN
     Dates: start: 2017
  17. IBUPROFEN [Concomitant]
     Active Substance: IBUPROFEN
     Dates: start: 2018
  18. IBUPROFEN [Concomitant]
     Active Substance: IBUPROFEN
     Dates: start: 2019
  19. IBUPROFEN [Concomitant]
     Active Substance: IBUPROFEN
     Dosage: PRN
     Dates: start: 2020
  20. ACETAMINOPHEN [Concomitant]
     Active Substance: ACETAMINOPHEN
     Dosage: 500 MG
     Dates: start: 2013
  21. ACETAMINOPHEN [Concomitant]
     Active Substance: ACETAMINOPHEN
     Dates: start: 2014
  22. ACETAMINOPHEN [Concomitant]
     Active Substance: ACETAMINOPHEN
     Dates: start: 2017
  23. ACETAMINOPHEN [Concomitant]
     Active Substance: ACETAMINOPHEN
     Dates: start: 2018
  24. ACETAMINOPHEN [Concomitant]
     Active Substance: ACETAMINOPHEN
     Dates: start: 2019
  25. COCODAMOL [Concomitant]
     Active Substance: ACETAMINOPHEN\CODEINE PHOSPHATE
     Dates: start: 2013
  26. COCODAMOL [Concomitant]
     Active Substance: ACETAMINOPHEN\CODEINE PHOSPHATE
     Dosage: AS NEEDED
     Dates: start: 2014
  27. LANSOPRAZOLE [Concomitant]
     Active Substance: LANSOPRAZOLE
     Dosage: 30 MG
     Dates: start: 2014
  28. LANSOPRAZOLE [Concomitant]
     Active Substance: LANSOPRAZOLE
     Dates: start: 2016
  29. LANSOPRAZOLE [Concomitant]
     Active Substance: LANSOPRAZOLE
     Dates: start: 2017
  30. LANSOPRAZOLE [Concomitant]
     Active Substance: LANSOPRAZOLE
     Dates: start: 2018
  31. LANSOPRAZOLE [Concomitant]
     Active Substance: LANSOPRAZOLE
     Dates: start: 2019
  32. LANSOPRAZOLE [Concomitant]
     Active Substance: LANSOPRAZOLE
     Dates: start: 2020
  33. FLUTICASONE FUROATE [Concomitant]
     Active Substance: FLUTICASONE FUROATE
     Dates: start: 2014
  34. VITAMIN C [Concomitant]
     Active Substance: ASCORBIC ACID
     Dosage: 1 GM
     Dates: start: 2014
  35. FISH OIL [Concomitant]
     Active Substance: FISH OIL
     Dosage: 1200
     Dates: start: 2014
  36. FISH OIL [Concomitant]
     Active Substance: FISH OIL
     Dates: start: 2015
  37. FISH OIL [Concomitant]
     Active Substance: FISH OIL
     Dates: start: 2016
  38. GLUCOSAMINE WITH CHONDROITIN [Concomitant]
     Dates: start: 2014
  39. GLUCOSAMINE WITH CHONDROITIN [Concomitant]
     Dates: start: 2015
  40. GLUCOSAMINE WITH CHONDROITIN [Concomitant]
     Dates: start: 2016
  41. LORATADINE [Concomitant]
     Active Substance: LORATADINE
     Dosage: 10 MG
     Dates: start: 2015
  42. TERIPARATIDE [Concomitant]
     Active Substance: TERIPARATIDE
     Dosage: 20 MICROGRAM
     Dates: start: 2015
  43. TERIPARATIDE [Concomitant]
     Active Substance: TERIPARATIDE
     Dates: start: 2016
  44. VITAMINS [Concomitant]
     Active Substance: VITAMINS
     Dates: start: 2015
  45. FELODIPINE [Concomitant]
     Active Substance: FELODIPINE
     Dates: start: 2016
  46. FELODIPINE [Concomitant]
     Active Substance: FELODIPINE
     Dates: start: 2017
  47. FELODIPINE [Concomitant]
     Active Substance: FELODIPINE
     Dates: start: 2018
  48. FELODIPINE [Concomitant]
     Active Substance: FELODIPINE
     Dates: start: 2019
  49. FELODIPINE [Concomitant]
     Active Substance: FELODIPINE
     Dates: start: 2020
  50. AMITRIPTYLINE [Concomitant]
     Active Substance: AMITRIPTYLINE
     Dosage: 10 MG
     Dates: start: 2017
  51. TYR COOLER [Concomitant]
     Dates: start: 2019
  52. DENOSUMAB [Concomitant]
     Active Substance: DENOSUMAB
     Dates: start: 2020

REACTIONS (3)
  - Lenticular opacities [Not Recovered/Not Resolved]
  - Cataract [Not Recovered/Not Resolved]
  - Amino acid level increased [Not Recovered/Not Resolved]

NARRATIVE: CASE EVENT DATE: 20130101
